FAERS Safety Report 8315421-4 (Version None)
Quarter: 2012Q2

REPORT INFORMATION
  Report Type: 
  Country: None (occurrence: None)
  Receive Date: 20120426
  Receipt Date: 20120131
  Transmission Date: 20120825
  Serious: Yes (Hospitalization)
  Sender: FDA-Public Use
  Company Number: DE-ACTELION-A-US2011-64644

PATIENT

DRUGS (2)
  1. VENTAVIS [Suspect]
     Indication: PRODUCT USED FOR UNKNOWN INDICATION
     Route: 055
  2. BRONCHOSEDAL [Concomitant]

REACTIONS (6)
  - FATIGUE [None]
  - MIGRAINE [None]
  - STRESS [None]
  - HEADACHE [None]
  - DEPRESSION [None]
  - COUGH [None]
